FAERS Safety Report 22517923 (Version 3)
Quarter: 2024Q2

REPORT INFORMATION
  Report Type: Report from Study
  Country: IT (occurrence: IT)
  Receive Date: 20230605
  Receipt Date: 20240525
  Transmission Date: 20240716
  Serious: Yes (Hospitalization)
  Sender: FDA-Public Use
  Company Number: IT-ABBVIE-5188554

PATIENT
  Age: 53 Year
  Sex: Female
  Weight: 58 kg

DRUGS (13)
  1. UPADACITINIB [Suspect]
     Active Substance: UPADACITINIB
     Indication: Rheumatoid arthritis
     Dosage: 15 MILLIGRAM
     Route: 048
     Dates: start: 20211130, end: 20220701
  2. UPADACITINIB [Suspect]
     Active Substance: UPADACITINIB
     Indication: Rheumatoid arthritis
     Dosage: 15 MILLIGRAM
     Route: 048
     Dates: start: 20220711, end: 20220903
  3. UPADACITINIB [Suspect]
     Active Substance: UPADACITINIB
     Indication: Rheumatoid arthritis
     Dosage: 15 MILLIGRAM
     Route: 048
     Dates: start: 20221009, end: 20230228
  4. UPADACITINIB [Suspect]
     Active Substance: UPADACITINIB
     Indication: Rheumatoid arthritis
     Dosage: 15 MILLIGRAM
     Route: 048
     Dates: start: 20221009, end: 20230228
  5. UPADACITINIB [Suspect]
     Active Substance: UPADACITINIB
     Indication: Rheumatoid arthritis
     Dosage: 15 MILLIGRAM
     Route: 048
     Dates: start: 20220711, end: 20220903
  6. PREDNISONE [Concomitant]
     Active Substance: PREDNISONE
     Indication: Neutrophilia
     Dosage: 5 MILLIGRAM
     Route: 048
     Dates: start: 20220701, end: 20220711
  7. PREDNISONE [Concomitant]
     Active Substance: PREDNISONE
     Indication: Neutrophilia
     Dosage: 5 MILLIGRAM
     Route: 048
     Dates: start: 20220701, end: 20220711
  8. ZOLEDRONIC ACID [Concomitant]
     Active Substance: ZOLEDRONIC ACID
     Indication: Prophylaxis
     Dosage: 5 MG
     Route: 042
     Dates: start: 20220701
  9. ZOLEDRONIC ACID [Concomitant]
     Active Substance: ZOLEDRONIC ACID
     Indication: Prophylaxis
     Dosage: 5 MG
     Route: 042
     Dates: start: 20220701
  10. CHOLECALCIFEROL [Concomitant]
     Active Substance: CHOLECALCIFEROL
     Indication: Prophylaxis
     Dosage: 25000 IU?FREQUENCY : EVERY 2 WEEKS?START DATE : UNKNOWN
     Route: 048
  11. SARS-CoV-2 vaccine [Concomitant]
     Indication: COVID-19 immunisation
     Dates: start: 20221026
  12. LEVOTHYROXINE SODIUM [Concomitant]
     Active Substance: LEVOTHYROXINE SODIUM
     Indication: Hypothyroidism
     Route: 048
     Dates: start: 202206
  13. PREDNISONE [Concomitant]
     Active Substance: PREDNISONE
     Indication: Drug therapy
     Dosage: 2.5 MILLIGRAM
     Route: 048

REACTIONS (3)
  - Orthopaedic procedure [Recovered/Resolved]
  - Electrocardiogram ST-T segment abnormal [Recovering/Resolving]
  - Tachycardia [Recovering/Resolving]

NARRATIVE: CASE EVENT DATE: 20220913
